FAERS Safety Report 7021072-4 (Version None)
Quarter: 2010Q3

REPORT INFORMATION
  Report Type: 
  Country: None (occurrence: None)
  Receive Date: 20100929
  Receipt Date: 20100915
  Transmission Date: 20110219
  Serious: Yes (Other)
  Sender: FDA-Public Use
  Company Number: ES-MYLANLABS-2010S1016830

PATIENT
  Age: 15 Year
  Sex: Male

DRUGS (3)
  1. CLOZAPINE [Suspect]
     Indication: SCHIZOPHRENIA
     Route: 065
  2. CLOZAPINE [Suspect]
     Route: 065
  3. CLOMIPRAMINE [Suspect]
     Indication: SCHIZOPHRENIA
     Route: 065

REACTIONS (4)
  - GRAND MAL CONVULSION [None]
  - MYOCLONUS [None]
  - POTENTIATING DRUG INTERACTION [None]
  - SPEECH DISORDER [None]
